FAERS Safety Report 8429557-0 (Version None)
Quarter: 2012Q2

REPORT INFORMATION
  Report Type: 
  Country: None (occurrence: None)
  Receive Date: 20120612
  Receipt Date: 20120604
  Transmission Date: 20120825
  Serious: Yes (Death, Hospitalization)
  Sender: FDA-Public Use
  Company Number: HR-JNJFOC-20120603716

PATIENT

DRUGS (33)
  1. METHOTREXATE [Suspect]
     Indication: BURKITT'S LEUKAEMIA
     Dosage: ON DAY 1 WITH FOLINIC ACID RESCUE
     Route: 065
  2. METHOTREXATE [Suspect]
     Indication: BURKITT'S LYMPHOMA
     Dosage: ON DAY 1 WITH FOLINIC ACID RESCUE
     Route: 065
  3. CYTARABINE [Suspect]
     Indication: BURKITT'S LEUKAEMIA
     Dosage: ON DAYS 4, 5
     Route: 065
  4. DOXORUBICIN HCL [Suspect]
     Indication: BURKITT'S LEUKAEMIA
     Dosage: ON DAYS 4, 5
     Route: 042
  5. CYCLOPHOSPHAMIDE [Suspect]
     Indication: BURKITT'S LYMPHOMA
     Dosage: ON DAYS 1-5
     Route: 065
  6. ETOPOSIDE [Suspect]
     Indication: BURKITT'S LEUKAEMIA
     Dosage: DAYS 4, 5
     Route: 065
  7. LEUCOVORIN CALCIUM [Suspect]
     Indication: BURKITT'S LYMPHOMA
     Route: 065
  8. BLOOD PRODUCTS [Concomitant]
     Indication: SUPPORTIVE CARE
     Route: 065
  9. CYCLOPHOSPHAMIDE [Suspect]
     Indication: BURKITT'S LEUKAEMIA
     Dosage: ON DAYS 1-5
     Route: 065
  10. PREDNISONE TAB [Suspect]
     Indication: BURKITT'S LEUKAEMIA
     Dosage: DAYS 1-5
     Route: 065
  11. DEXAMETHASONE [Suspect]
     Indication: BURKITT'S LYMPHOMA
     Dosage: ON DAYS 1-5
     Route: 065
  12. ACYCLOVIR [Concomitant]
     Indication: SUPPORTIVE CARE
     Route: 065
  13. IFOSFAMIDE [Suspect]
     Indication: BURKITT'S LEUKAEMIA
     Dosage: ON DAYS 1-5
     Route: 065
  14. ETOPOSIDE [Suspect]
     Indication: BURKITT'S LYMPHOMA
     Dosage: DAYS 4, 5
     Route: 065
  15. RITUXIMAB [Suspect]
     Indication: BURKITT'S LEUKAEMIA
     Route: 065
  16. RADIATION THERAPY NOS [Suspect]
     Indication: BURKITT'S LEUKAEMIA
     Dosage: 30-36 GY
     Route: 065
  17. ANTIBIOTICS [Concomitant]
     Indication: SUPPORTIVE CARE
     Route: 065
  18. DOXORUBICIN HCL [Suspect]
     Indication: BURKITT'S LYMPHOMA
     Dosage: ON DAYS 4, 5
     Route: 042
  19. PREDNISONE TAB [Suspect]
     Indication: BURKITT'S LYMPHOMA
     Dosage: DAYS 1-5
     Route: 065
  20. IFOSFAMIDE [Suspect]
     Indication: BURKITT'S LYMPHOMA
     Dosage: ON DAYS 1-5
     Route: 065
  21. METHOTREXATE [Suspect]
     Indication: PROPHYLAXIS
     Route: 037
  22. METHYLPREDNISOLONE [Suspect]
     Indication: PROPHYLAXIS
     Route: 037
  23. RITUXIMAB [Suspect]
     Indication: BURKITT'S LYMPHOMA
     Route: 065
  24. CYTARABINE [Suspect]
     Indication: BURKITT'S LYMPHOMA
     Dosage: ON DAYS 4, 5
     Route: 065
  25. DEXAMETHASONE [Suspect]
     Indication: BURKITT'S LEUKAEMIA
     Dosage: ON DAYS 1-5
     Route: 065
  26. LEUCOVORIN CALCIUM [Suspect]
     Indication: BURKITT'S LEUKAEMIA
     Route: 065
  27. RADIATION THERAPY NOS [Suspect]
     Indication: BURKITT'S LYMPHOMA
     Dosage: 30-36 GY
     Route: 065
  28. NEUPOGEN [Concomitant]
     Indication: SUPPORTIVE CARE
     Route: 065
  29. VINCRISTINE [Suspect]
     Indication: BURKITT'S LEUKAEMIA
     Dosage: ON DAY 1
     Route: 065
  30. VINCRISTINE [Suspect]
     Indication: BURKITT'S LYMPHOMA
     Dosage: ON DAY 1
     Route: 065
  31. CYTARABINE [Suspect]
     Indication: PROPHYLAXIS
     Route: 037
  32. MESNA [Suspect]
     Indication: BURKITT'S LEUKAEMIA
     Dosage: ON DAYS 1-5
     Route: 065
  33. MESNA [Suspect]
     Indication: BURKITT'S LYMPHOMA
     Dosage: ON DAYS 1-5
     Route: 065

REACTIONS (5)
  - MULTI-ORGAN FAILURE [None]
  - TUMOUR LYSIS SYNDROME [None]
  - CONDITION AGGRAVATED [None]
  - FEBRILE NEUTROPENIA [None]
  - MUCOSAL INFLAMMATION [None]
